FAERS Safety Report 18416014 (Version 4)
Quarter: 2022Q2

REPORT INFORMATION
  Report Type: Spontaneous
  Country: US (occurrence: US)
  Receive Date: 20201022
  Receipt Date: 20220510
  Transmission Date: 20220721
  Serious: Yes (Other)
  Sender: FDA-Public Use
  Company Number: US-GLAXOSMITHKLINE-US2020GSK204139

PATIENT
  Sex: Male

DRUGS (23)
  1. PREVACID 24 HR [Suspect]
     Active Substance: LANSOPRAZOLE
     Indication: Dyspepsia
     Dosage: UNK
     Route: 048
     Dates: start: 2009, end: 2017
  2. PREVACID 24 HR [Suspect]
     Active Substance: LANSOPRAZOLE
     Indication: Gastrooesophageal reflux disease
  3. NEXIUM [Suspect]
     Active Substance: ESOMEPRAZOLE MAGNESIUM
     Indication: Dyspepsia
     Dosage: 40 MG, QD
     Route: 065
     Dates: start: 2001, end: 2017
  4. NEXIUM [Suspect]
     Active Substance: ESOMEPRAZOLE MAGNESIUM
     Indication: Gastrooesophageal reflux disease
     Dosage: 20 UNK
     Route: 065
     Dates: start: 2001, end: 2017
  5. NEXIUM 24HR [Suspect]
     Active Substance: ESOMEPRAZOLE MAGNESIUM
     Indication: Dyspepsia
     Dosage: UNK
     Route: 065
     Dates: start: 2014, end: 2017
  6. NEXIUM 24HR [Suspect]
     Active Substance: ESOMEPRAZOLE MAGNESIUM
     Indication: Gastrooesophageal reflux disease
  7. PREVACID [Suspect]
     Active Substance: LANSOPRAZOLE
     Indication: Dyspepsia
     Dosage: UNK, UNK
     Route: 065
  8. PREVACID [Suspect]
     Active Substance: LANSOPRAZOLE
     Indication: Gastrooesophageal reflux disease
  9. LANSOPRAZOLE [Suspect]
     Active Substance: LANSOPRAZOLE
     Indication: Gastrooesophageal reflux disease
     Dosage: 30 MG
     Route: 048
     Dates: start: 2018
  10. LANSOPRAZOLE [Suspect]
     Active Substance: LANSOPRAZOLE
     Indication: Dyspepsia
  11. PANTOPRAZOLE [Suspect]
     Active Substance: PANTOPRAZOLE
     Indication: Gastrooesophageal reflux disease
     Dosage: 40 MG, QD
     Route: 048
     Dates: start: 2013, end: 2016
  12. PANTOPRAZOLE [Suspect]
     Active Substance: PANTOPRAZOLE
     Indication: Dyspepsia
  13. PRILOSEC [Suspect]
     Active Substance: OMEPRAZOLE MAGNESIUM
     Indication: Gastrooesophageal reflux disease
     Dosage: 40 MG, QD
     Route: 065
     Dates: start: 1989, end: 2017
  14. PRILOSEC [Suspect]
     Active Substance: OMEPRAZOLE MAGNESIUM
     Indication: Dyspepsia
     Dosage: 40 MG, QD
     Route: 065
     Dates: start: 1995, end: 2017
  15. PRILOSEC [Suspect]
     Active Substance: OMEPRAZOLE MAGNESIUM
     Indication: Dyspepsia
     Dosage: UNK
     Route: 065
     Dates: start: 2003, end: 2017
  16. PRILOSEC [Suspect]
     Active Substance: OMEPRAZOLE MAGNESIUM
     Indication: Gastrooesophageal reflux disease
  17. PROTONIX [Suspect]
     Active Substance: PANTOPRAZOLE SODIUM
     Indication: Gastrooesophageal reflux disease
     Dosage: UNK, UNK
     Route: 065
     Dates: start: 2000, end: 2017
  18. PROTONIX [Suspect]
     Active Substance: PANTOPRAZOLE SODIUM
     Indication: Dyspepsia
  19. OMEPRAZOLE [Suspect]
     Active Substance: OMEPRAZOLE
     Indication: Dyspepsia
     Dosage: 10 MG, QD
     Route: 048
  20. OMEPRAZOLE [Suspect]
     Active Substance: OMEPRAZOLE
     Indication: Gastrooesophageal reflux disease
     Dosage: 40 MG, QD
     Route: 048
     Dates: start: 2017, end: 2018
  21. OMEPRAZOLE [Suspect]
     Active Substance: OMEPRAZOLE
     Dosage: 40 MG, QD
     Route: 048
  22. OMEPRAZOLE [Suspect]
     Active Substance: OMEPRAZOLE
     Indication: Product used for unknown indication
     Dosage: 10 MG
     Route: 048
  23. OMEPRAZOLE [Suspect]
     Active Substance: OMEPRAZOLE
     Dosage: 30 MG
     Route: 048

REACTIONS (7)
  - Chronic kidney disease [Not Recovered/Not Resolved]
  - Acute kidney injury [Unknown]
  - Nephrolithiasis [Unknown]
  - Renal failure [Unknown]
  - Proteinuria [Unknown]
  - Adrenal adenoma [Unknown]
  - Calculus urinary [Unknown]
